FAERS Safety Report 8901920 (Version 1)
Quarter: 2012Q4

REPORT INFORMATION
  Report Type: Spontaneous
  Country: US (occurrence: None)
  Receive Date: 20121109
  Receipt Date: 20121109
  Transmission Date: 20130627
  Serious: No
  Sender: FDA-Public Use
  Company Number: None

PATIENT
  Age: 78 Year
  Sex: Male

DRUGS (2)
  1. DYMISTA [Suspect]
     Indication: URINARY RETENTION
     Dosage: 2 sprays q day Nasal
     Route: 045
     Dates: start: 20121020, end: 20121025
  2. DYMISTA [Suspect]
     Indication: POST PROCEDURAL INFECTION
     Dosage: 2 sprays q day Nasal
     Route: 045
     Dates: start: 20121020, end: 20121025

REACTIONS (2)
  - Urinary incontinence [None]
  - Post procedural infection [None]
